FAERS Safety Report 17957715 (Version 1)
Quarter: 2020Q2

REPORT INFORMATION
  Report Type: Spontaneous
  Country: CA (occurrence: CA)
  Receive Date: 20200629
  Receipt Date: 20200629
  Transmission Date: 20200714
  Serious: Yes (Death)
  Sender: FDA-Public Use
  Company Number: CA-ACCORD-187023

PATIENT
  Age: 76 Year
  Sex: Male
  Weight: 50 kg

DRUGS (11)
  1. PARACETAMOL [Concomitant]
     Active Substance: ACETAMINOPHEN
     Dosage: NOT SPECIFIED
  2. CALCIUM [Concomitant]
     Active Substance: CALCIUM
     Dosage: NOT SPECIFIED
  3. HYDROCHLOROTHIAZIDE/LOSARTAN POTASSIUM [Concomitant]
     Active Substance: HYDROCHLOROTHIAZIDE\LOSARTAN POTASSIUM
  4. NIFEDIPINE. [Concomitant]
     Active Substance: NIFEDIPINE
     Dosage: NOT SPECIFIED
  5. TECENTRIQ [Suspect]
     Active Substance: ATEZOLIZUMAB
     Indication: SMALL CELL LUNG CANCER
     Dosage: CONCENTRATE. SINGLE USE VIALS FREQUENCY ONCE
     Route: 042
  6. CARBOPLATIN. [Suspect]
     Active Substance: CARBOPLATIN
     Indication: SMALL CELL LUNG CANCER
     Dosage: SOLUTION INTRAVENOUS
     Route: 042
  7. ETOPOSIDE. [Suspect]
     Active Substance: ETOPOSIDE
     Indication: SMALL CELL LUNG CANCER
     Dosage: NOT SPECIFIED
     Route: 042
  8. TIOTROPIUM [Concomitant]
     Active Substance: TIOTROPIUM
  9. COLECALCIFEROL [Concomitant]
     Active Substance: CHOLECALCIFEROL
     Dosage: 1000 IU
  10. ACETYLSALICYLIC ACID [Concomitant]
     Active Substance: ASPIRIN
     Dosage: NOT SPECIFIED
  11. ATORVASTATIN [Concomitant]
     Active Substance: ATORVASTATIN

REACTIONS (10)
  - Acute myocardial infarction [Fatal]
  - Abdominal pain [Fatal]
  - Atrial fibrillation [Fatal]
  - Metabolic acidosis [Fatal]
  - Diarrhoea [Fatal]
  - Hypokalaemia [Fatal]
  - Vomiting [Fatal]
  - Neutropenia [Fatal]
  - Pyrexia [Fatal]
  - Sepsis [Fatal]
